FAERS Safety Report 9199833 (Version 2)
Quarter: 2013Q2

REPORT INFORMATION
  Report Type: Spontaneous
  Country: US (occurrence: US)
  Receive Date: 20130329
  Receipt Date: 20130506
  Transmission Date: 20140414
  Serious: Yes (Hospitalization)
  Sender: FDA-Public Use
  Company Number: US-GILEAD-2013-0072582

PATIENT
  Age: 80 Year
  Sex: Female

DRUGS (22)
  1. LETAIRIS [Suspect]
     Indication: PULMONARY ARTERIAL HYPERTENSION
     Dosage: 5 MG, QD
     Route: 048
     Dates: start: 20071020
  2. FUROSEMIDE [Concomitant]
  3. CRESTOR [Concomitant]
  4. METOPROLOL [Concomitant]
  5. SUCCINATE SODIUM [Concomitant]
  6. VIAGRA [Concomitant]
  7. FERROUS SULFATE [Concomitant]
  8. NEXIUM                             /01479302/ [Concomitant]
  9. OXYGEN [Concomitant]
  10. GLUCOSAMINE CHONDROITIN            /01430901/ [Concomitant]
  11. ALDACTONE                          /00006201/ [Concomitant]
  12. METAMUCIL                          /00029101/ [Concomitant]
  13. COUMADIN                           /00014802/ [Concomitant]
  14. ASPIRIN [Concomitant]
  15. TYLENOL                            /00020001/ [Concomitant]
  16. MULTIPLE VITAMINS [Concomitant]
  17. DIGOXIN [Concomitant]
  18. NORITATE [Concomitant]
  19. COLACE [Concomitant]
  20. SALINE NASAL SPRAY [Concomitant]
  21. SYSTANE [Concomitant]
  22. VITAMIN D3 [Concomitant]

REACTIONS (2)
  - Chest pain [Recovered/Resolved]
  - Arterial occlusive disease [Unknown]
